FAERS Safety Report 5988665-4 (Version None)
Quarter: 2008Q4

REPORT INFORMATION
  Report Type: 
  Country: None (occurrence: None)
  Receive Date: 20081210
  Receipt Date: 20081202
  Transmission Date: 20090506
  Serious: Yes (Other)
  Sender: FDA-Public Use
  Company Number: US-PFIZER INC-2008150520

PATIENT
  Sex: Female
  Weight: 113.39 kg

DRUGS (14)
  1. TIKOSYN [Suspect]
     Indication: ATRIAL FIBRILLATION
     Dosage: 375 UG, 2X/DAY
     Dates: start: 20071101
  2. COUMADIN [Concomitant]
     Dosage: 5 MG, ALTERNATE DAY
  3. METOPROLOL TARTRATE [Concomitant]
     Dosage: 50 MG, UNK
  4. POTASSIUM CHLORIDE [Concomitant]
     Dosage: 20 MG, 2X/DAY
  5. MAG-OX [Concomitant]
     Dosage: 400 MG, 2X/DAY
  6. LEVOTHYROXINE SODIUM [Concomitant]
     Dosage: 100 UG, UNK
  7. PREVACID [Concomitant]
     Dosage: 30 UNK, 1X/DAY
  8. DEPAKOTE [Concomitant]
     Dosage: 500 UNK, 2X/DAY
  9. CELEXA [Concomitant]
     Dosage: 20 MG, 1X/DAY
  10. ALBUTEROL [Concomitant]
     Dosage: UNK
  11. XANAX [Concomitant]
     Dosage: 0.25 MG, AS NEEDED
  12. ASPIRIN [Concomitant]
     Dosage: 325 UNK, UNK
  13. POLYETHYLENE GLYCOL [Concomitant]
     Dosage: 17 G, 2X/DAY
  14. HYDROCODONE BITARTRATE [Concomitant]
     Dosage: 5 MG, UNK

REACTIONS (3)
  - ATRIAL FIBRILLATION [None]
  - BREAST CANCER [None]
  - CONDITION AGGRAVATED [None]
